FAERS Safety Report 22235939 (Version 1)
Quarter: 2023Q2

REPORT INFORMATION
  Report Type: Spontaneous
  Country: US (occurrence: None)
  Receive Date: 20230419
  Receipt Date: 20230419
  Transmission Date: 20230722
  Serious: Yes (Hospitalization)
  Sender: FDA-Public Use
  Company Number: None

PATIENT
  Age: 27 Year
  Sex: Female

DRUGS (4)
  1. GAMMAGARD LIQUID [Suspect]
     Active Substance: HUMAN IMMUNOGLOBULIN G
     Indication: Immunodeficiency common variable
     Dosage: OTHER STRENGTH : 30GM/300ML;?OTHER QUANTITY : 30GM/300ML;?FREQUENCY : MONTHLY;?
     Route: 042
     Dates: start: 20220830
  2. MULTIVITAMIN TAB WOMENS [Concomitant]
  3. SOD CHL 0.9% 500 ML/BAG [Concomitant]
  4. SOD CHL 0.9% FLSH 10ML/SYR [Concomitant]

REACTIONS (6)
  - Chills [None]
  - Hot flush [None]
  - Feeling cold [None]
  - Blood potassium decreased [None]
  - Blood magnesium decreased [None]
  - Blood electrolytes decreased [None]

NARRATIVE: CASE EVENT DATE: 20230308
